FAERS Safety Report 6042320-3 (Version None)
Quarter: 2009Q1

REPORT INFORMATION
  Report Type: 
  Country: None (occurrence: None)
  Receive Date: 20090116
  Receipt Date: 20090107
  Transmission Date: 20090719
  Serious: Yes (Other)
  Sender: FDA-Public Use
  Company Number: CN-PFIZER INC-2009155685

PATIENT

DRUGS (1)
  1. AZITHROMYCIN [Suspect]
     Indication: PNEUMONIA
     Route: 038
     Dates: start: 20080402, end: 20080402

REACTIONS (3)
  - ANAPHYLACTOID REACTION [None]
  - ATRIAL FIBRILLATION [None]
  - DELIRIUM [None]
